FAERS Safety Report 8515747-5 (Version None)
Quarter: 2012Q3

REPORT INFORMATION
  Report Type: 
  Country: None (occurrence: None)
  Receive Date: 20120717
  Receipt Date: 20120714
  Transmission Date: 20120928
  Serious: Yes (Death, Other)
  Sender: FDA-Public Use
  Company Number: PHHY2012JP060395

PATIENT
  Age: 35 Year
  Sex: Female

DRUGS (8)
  1. METHOTREXATE [Concomitant]
     Indication: PROPHYLAXIS AGAINST GRAFT VERSUS HOST DISEASE
  2. ANTIBIOTICS [Concomitant]
  3. ACYCLOVIR [Concomitant]
  4. CYCLOSPORINE [Suspect]
     Indication: PROPHYLAXIS AGAINST GRAFT VERSUS HOST DISEASE
  5. FLUDARABINE PHOSPHATE [Concomitant]
     Indication: BONE MARROW CONDITIONING REGIMEN
  6. CYTARABINE [Concomitant]
     Indication: BONE MARROW CONDITIONING REGIMEN
  7. IMMUNE GLOBULIN NOS [Concomitant]
  8. BUSULFAN [Concomitant]
     Indication: BONE MARROW CONDITIONING REGIMEN

REACTIONS (3)
  - NEUTROPENIA [None]
  - BONE MARROW TRANSPLANT REJECTION [None]
  - PNEUMONIA BACTERIAL [None]
